FAERS Safety Report 15290116 (Version 2)
Quarter: 2018Q3

REPORT INFORMATION
  Report Type: Report from Study
  Country: FR (occurrence: FR)
  Receive Date: 20180817
  Receipt Date: 20180828
  Transmission Date: 20181010
  Serious: Yes (Hospitalization)
  Sender: FDA-Public Use
  Company Number: FR-JNJFOC-20180814617

PATIENT
  Age: 74 Year
  Sex: Male

DRUGS (12)
  1. VENETOCLAX. [Suspect]
     Active Substance: VENETOCLAX
     Indication: MANTLE CELL LYMPHOMA
     Dosage: FROM CYCLE 9 DAY 1 TO CYCLE 10 DAY 9 STOPPED DUE TO THE EVENT)
     Route: 048
     Dates: start: 20180621, end: 20180808
  2. IBRUTINIB [Suspect]
     Active Substance: IBRUTINIB
     Indication: MANTLE CELL LYMPHOMA
     Dosage: INITIATED FROM CYCLE 1 TO CYCLE 8 DAY 5 STOP DUE TO ADVERSE EVENT.
     Route: 048
     Dates: start: 20171006, end: 20180528
  3. VENETOCLAX. [Suspect]
     Active Substance: VENETOCLAX
     Indication: MANTLE CELL LYMPHOMA
     Dosage: (FROM CYCLE 5 DAY 1 TO CYCLE 7 DAY 28 STOPPED DUE TO EVENT)
     Route: 048
     Dates: start: 20180301, end: 20180523
  4. OBINUTUZUMAB. [Suspect]
     Active Substance: OBINUTUZUMAB
     Indication: MANTLE CELL LYMPHOMA
     Route: 042
     Dates: start: 20171102, end: 20180524
  5. VENETOCLAX. [Suspect]
     Active Substance: VENETOCLAX
     Indication: MANTLE CELL LYMPHOMA
     Dosage: (CYCLE 1 TWICE DAY 1 TO DAY 7 AND STOPPED DUE TO EVENT)
     Route: 048
     Dates: start: 20171102, end: 20171108
  6. VENETOCLAX. [Suspect]
     Active Substance: VENETOCLAX
     Indication: MANTLE CELL LYMPHOMA
     Dosage: (CYCLE 1 TWICE DAY 15 TO DAY 21)
     Route: 048
     Dates: start: 20171116, end: 20171122
  7. VENETOCLAX. [Suspect]
     Active Substance: VENETOCLAX
     Indication: MANTLE CELL LYMPHOMA
     Dosage: (CYCLE 1 TWICE DAY 22 TO DAY 35)
     Route: 048
     Dates: start: 20171123, end: 20171206
  8. OBINUTUZUMAB. [Suspect]
     Active Substance: OBINUTUZUMAB
     Indication: MANTLE CELL LYMPHOMA
     Route: 042
     Dates: start: 20180731
  9. VENETOCLAX. [Suspect]
     Active Substance: VENETOCLAX
     Indication: MANTLE CELL LYMPHOMA
     Dosage: (CYCLE 2 FROM DAY 1 TO DAY 7)
     Route: 048
     Dates: start: 20171207, end: 20171213
  10. OBINUTUZUMAB. [Suspect]
     Active Substance: OBINUTUZUMAB
     Indication: MANTLE CELL LYMPHOMA
     Dosage: 100 MG AT DAY 1 AND 900 MG AT DAY 2, 1000 MG AT DAY 8 AND DAY 15
     Route: 042
     Dates: start: 20171005, end: 20171019
  11. IBRUTINIB [Suspect]
     Active Substance: IBRUTINIB
     Indication: MANTLE CELL LYMPHOMA
     Dosage: INITIATED FROM CYCLE 9 DAY 1
     Route: 048
     Dates: start: 20180621
  12. VENETOCLAX. [Suspect]
     Active Substance: VENETOCLAX
     Indication: MANTLE CELL LYMPHOMA
     Dosage: (CYCLE 2 FROM DAY 8 TO CYCLE 4 DAY 20 STOPPED DUE TO EVENT)
     Route: 048
     Dates: start: 20171214, end: 20180220

REACTIONS (1)
  - Pneumonia [Not Recovered/Not Resolved]

NARRATIVE: CASE EVENT DATE: 20180809
